FAERS Safety Report 4637862-9 (Version None)
Quarter: 2005Q2

REPORT INFORMATION
  Report Type: 
  Country: None (occurrence: None)
  Receive Date: 20050418
  Receipt Date: 20050412
  Transmission Date: 20051028
  Serious: Yes (Life-Threatening)
  Sender: FDA-Public Use
  Company Number: US-MERCK-0504USA01749

PATIENT
  Age: 67 Year
  Sex: Female

DRUGS (4)
  1. ZOCOR [Suspect]
     Indication: LOW DENSITY LIPOPROTEIN INCREASED
     Route: 048
     Dates: start: 20040401, end: 20050405
  2. FOSAMAX [Concomitant]
     Route: 048
  3. AZOPT DROPS [Concomitant]
     Route: 065
  4. PRILOSEC [Concomitant]
     Route: 065

REACTIONS (9)
  - ARTHRALGIA [None]
  - DEPRESSION [None]
  - DYSPNOEA [None]
  - FATIGUE [None]
  - HEADACHE [None]
  - MYALGIA [None]
  - POLLAKIURIA [None]
  - URINE OUTPUT INCREASED [None]
  - WEIGHT DECREASED [None]
